FAERS Safety Report 9820624 (Version 1)
Quarter: 2013Q4

REPORT INFORMATION
  Report Type: Spontaneous
  Country: US (occurrence: None)
  Receive Date: 20131028
  Receipt Date: 20131028
  Transmission Date: 20140711
  Serious: Yes (Other)
  Sender: FDA-Public Use
  Company Number: 2013US001694

PATIENT
  Age: 75 Year
  Sex: Male
  Weight: 103 kg

DRUGS (12)
  1. ICLUSIG [Suspect]
     Indication: CHRONIC MYELOID LEUKAEMIA
     Route: 048
     Dates: start: 20130522
  2. INSULIN (INSULIN) [Concomitant]
  3. FINASTERIDE (FINASTERIDE) [Concomitant]
  4. GLIMEPIRIDE (GLIMEPIRIDE) [Concomitant]
  5. LEVEMIR (INSULIN DETEMIR) [Concomitant]
  6. AMLODIPINE (AMLODIPINE) [Concomitant]
  7. NITRO PATCH (GLYCERYL TRINITRATE) [Concomitant]
  8. QUINIDINE (QUINIDINE) [Concomitant]
  9. PREVASTATIN (PREVASTATIN) [Concomitant]
  10. LEXAPRO (ESCITALOPRAM OXALATE [Concomitant]
  11. ZEMPLAR (PARICALCITOL) [Concomitant]
  12. ASA (ASA) [Concomitant]

REACTIONS (2)
  - Inadequate diet [None]
  - Blood glucose increased [None]
